FAERS Safety Report 18740210 (Version 6)
Quarter: 2021Q3

REPORT INFORMATION
  Report Type: Report from Study
  Country: AR (occurrence: AR)
  Receive Date: 20210114
  Receipt Date: 20210721
  Transmission Date: 20211014
  Serious: Yes (Other)
  Sender: FDA-Public Use
  Company Number: US-TAKEDA-2021TUS002208

PATIENT
  Sex: Female
  Weight: 68 kg

DRUGS (3)
  1. VELAGLUCERASE ALFA [Suspect]
     Active Substance: VELAGLUCERASE ALFA
     Dosage: 9 DOSAGE FORM, Q2WEEKS
     Route: 042
     Dates: start: 20071210
  2. VELAGLUCERASE ALFA [Suspect]
     Active Substance: VELAGLUCERASE ALFA
     Dosage: UNK UNK, Q2WEEKS
     Route: 042
     Dates: start: 20071210
  3. VELAGLUCERASE ALFA [Suspect]
     Active Substance: VELAGLUCERASE ALFA
     Indication: GAUCHER^S DISEASE TYPE I
     Dosage: 60 MILLIGRAM PER KILOGRAM, Q2WEEKS
     Route: 050
     Dates: start: 20071210

REACTIONS (4)
  - Limb injury [Recovering/Resolving]
  - Wound [Recovering/Resolving]
  - Exposure during pregnancy [Recovering/Resolving]
  - Osteolysis [Not Recovered/Not Resolved]
